FAERS Safety Report 5900328-X (Version None)
Quarter: 2008Q3

REPORT INFORMATION
  Report Type: 
  Country: None (occurrence: None)
  Receive Date: 20080926
  Receipt Date: 20080915
  Transmission Date: 20090109
  Serious: Yes (Hospitalization)
  Sender: FDA-Public Use
  Company Number: DE-ROCHE-580161

PATIENT
  Age: 65 Year
  Sex: Female
  Weight: 64 kg

DRUGS (3)
  1. CAPECITABINE [Suspect]
     Route: 048
     Dates: start: 20080505, end: 20080807
  2. BONDRONAT [Concomitant]
     Route: 042
     Dates: start: 20071201
  3. CALCIUM GLUCONATE [Concomitant]
     Route: 042

REACTIONS (1)
  - FRACTURE [None]
